FAERS Safety Report 6804624-3 (Version None)
Quarter: 2010Q2

REPORT INFORMATION
  Report Type: 
  Country: None (occurrence: None)
  Receive Date: 20100628
  Receipt Date: 20070424
  Transmission Date: 20101027
  Serious: No
  Sender: FDA-Public Use
  Company Number: US-PFIZER INC-2007033762

PATIENT
  Sex: Male

DRUGS (5)
  1. GEODON [Suspect]
     Indication: PSYCHOTIC DISORDER
     Dates: start: 20070417
  2. ACETYLSALICYLIC ACID [Concomitant]
  3. OMEPRAZOLE [Concomitant]
  4. TYLENOL [Concomitant]
  5. IBUPROFEN [Concomitant]

REACTIONS (1)
  - LEUKOCYTOSIS [None]
